FAERS Safety Report 16646494 (Version 1)
Quarter: 2019Q3

REPORT INFORMATION
  Report Type: Spontaneous
  Country: CN (occurrence: CN)
  Receive Date: 20190730
  Receipt Date: 20190730
  Transmission Date: 20191004
  Serious: Yes (Other)
  Sender: FDA-Public Use
  Company Number: CN-PFIZER INC-2019320339

PATIENT
  Age: 73 Year
  Sex: Male

DRUGS (4)
  1. ASPIRIN (E.C.) [Suspect]
     Active Substance: ASPIRIN
     Dosage: UNK
     Route: 048
  2. ATORVASTATIN CALCIUM. [Suspect]
     Active Substance: ATORVASTATIN CALCIUM
     Dosage: UNK
     Route: 048
  3. OXIRACETAM [Suspect]
     Active Substance: OXIRACETAM
     Dosage: UNK
     Route: 048
  4. NAOXINTONG [Suspect]
     Active Substance: HERBALS
     Route: 048

REACTIONS (2)
  - Gastritis erosive [Unknown]
  - Femur fracture [Unknown]

NARRATIVE: CASE EVENT DATE: 2014
